FAERS Safety Report 7807983-8 (Version None)
Quarter: 2011Q4

REPORT INFORMATION
  Report Type: 
  Country: None (occurrence: None)
  Receive Date: 20111011
  Receipt Date: 20111011
  Transmission Date: 20120403
  Serious: Yes (Disabling)
  Sender: FDA-Public Use
  Company Number: None

PATIENT
  Age: 64 Year
  Sex: Female
  Weight: 89.811 kg

DRUGS (1)
  1. DIAZEPAM [Suspect]
     Indication: MUSCLE SPASMS
     Dosage: 2MG
     Route: 048
     Dates: start: 20110831, end: 20110831

REACTIONS (2)
  - LIP SWELLING [None]
  - OEDEMA MOUTH [None]
